FAERS Safety Report 4304634-4 (Version None)
Quarter: 2004Q1

REPORT INFORMATION
  Report Type: 
  Country: None (occurrence: None)
  Receive Date: 20040226
  Receipt Date: 20031105
  Transmission Date: 20041129
  Serious: No
  Sender: FDA-Public Use
  Company Number: US-GLAXOSMITHKLINE-A0433117A

PATIENT
  Age: 43 Year
  Sex: Female
  Weight: 54.5 kg

DRUGS (2)
  1. WELLBUTRIN [Suspect]
     Indication: DEPRESSION
     Route: 048
  2. TRAZODONE HCL [Concomitant]
     Dosage: 50MG PER DAY

REACTIONS (2)
  - INSOMNIA [None]
  - RESTLESSNESS [None]
